FAERS Safety Report 11123240 (Version 1)
Quarter: 2015Q2

REPORT INFORMATION
  Report Type: Spontaneous
  Country: US (occurrence: US)
  Receive Date: 20150519
  Receipt Date: 20150519
  Transmission Date: 20150821
  Serious: No
  Sender: FDA-Public Use
  Company Number: US-AUXILIUM PHARMACEUTICALS INC.-201501056

PATIENT
  Sex: Male

DRUGS (6)
  1. CLONAZEPAM. [Concomitant]
     Active Substance: CLONAZEPAM
  2. XIAFLEX [Suspect]
     Active Substance: COLLAGENASE CLOSTRIDIUM HISTOLYTICUM
     Dates: start: 20141222, end: 20141222
  3. XIAFLEX [Suspect]
     Active Substance: COLLAGENASE CLOSTRIDIUM HISTOLYTICUM
     Indication: PEYRONIE^S DISEASE
     Dates: start: 201410, end: 201410
  4. ZOCOR [Concomitant]
     Active Substance: SIMVASTATIN
  5. CLOMIPHENE [Concomitant]
     Active Substance: CLOMIPHENE
  6. PRILOSEC [Concomitant]
     Active Substance: OMEPRAZOLE MAGNESIUM
     Indication: GASTROOESOPHAGEAL REFLUX DISEASE

REACTIONS (4)
  - Penile swelling [Recovering/Resolving]
  - Penile contusion [Recovering/Resolving]
  - Penile haematoma [Recovered/Resolved]
  - Penile pain [Recovering/Resolving]

NARRATIVE: CASE EVENT DATE: 20141222
